FAERS Safety Report 9910911 (Version 2)
Quarter: 2014Q1

REPORT INFORMATION
  Report Type: Spontaneous
  Country: US (occurrence: US)
  Receive Date: 20140219
  Receipt Date: 20140219
  Transmission Date: 20141002
  Serious: No
  Sender: FDA-Public Use
  Company Number: US-GILEAD-2012-0054472

PATIENT
  Sex: Female

DRUGS (3)
  1. LETAIRIS [Suspect]
     Indication: PULMONARY HYPERTENSION
     Dosage: 5 MG, UNK
     Route: 048
     Dates: start: 20120315
  2. LETAIRIS [Suspect]
     Indication: UNEVALUABLE EVENT
  3. SPIRONOLACTONE [Suspect]

REACTIONS (3)
  - Middle insomnia [Unknown]
  - Blood pressure decreased [Recovered/Resolved]
  - Fluid retention [Unknown]
